FAERS Safety Report 5067442-5 (Version None)
Quarter: 2006Q3

REPORT INFORMATION
  Report Type: 
  Country: None (occurrence: None)
  Receive Date: 20060802
  Receipt Date: 20060727
  Transmission Date: 20061208
  Serious: Yes (Other)
  Sender: FDA-Public Use
  Company Number: 2006UW15178

PATIENT
  Age: 82 Year
  Sex: Male

DRUGS (6)
  1. CASODEX [Suspect]
     Indication: PROSTATE CANCER
     Route: 048
     Dates: start: 20020101
  2. CASODEX [Suspect]
     Route: 048
  3. NEXIUM [Concomitant]
  4. ESTRADIOL INJ [Concomitant]
  5. ASPIRIN [Concomitant]
  6. NORVASC [Concomitant]

REACTIONS (7)
  - ABDOMINAL PAIN UPPER [None]
  - ASTHENIA [None]
  - DIZZINESS [None]
  - DYSPNOEA [None]
  - GALLBLADDER DISORDER [None]
  - HOT FLUSH [None]
  - ULCER [None]
